FAERS Safety Report 16695997 (Version 2)
Quarter: 2019Q3

REPORT INFORMATION
  Report Type: Report from Study
  Country: JP (occurrence: JP)
  Receive Date: 20190813
  Receipt Date: 20190828
  Transmission Date: 20191004
  Serious: Yes (Other)
  Sender: FDA-Public Use
  Company Number: JP-ASTELLAS-2019JP012607

PATIENT
  Age: 81 Year
  Sex: Female

DRUGS (3)
  1. ASP2215 [Interacting]
     Active Substance: GILTERITINIB
     Route: 048
     Dates: start: 20190628
  2. ITRACONAZOLE. [Interacting]
     Active Substance: ITRACONAZOLE
     Indication: PRODUCT USED FOR UNKNOWN INDICATION
     Dosage: 100 MG/DAY, UNKNOWN FREQ.
     Route: 048
     Dates: start: 20190712, end: 20190718
  3. ASP2215 [Suspect]
     Active Substance: GILTERITINIB
     Indication: ACUTE MYELOID LEUKAEMIA
     Route: 048
     Dates: start: 20190523, end: 20190628

REACTIONS (6)
  - Pyrexia [Recovered/Resolved]
  - Drug interaction [Unknown]
  - Paraesthesia [Recovered/Resolved]
  - Hepatic function abnormal [Recovered/Resolved]
  - Blast cell count increased [Not Recovered/Not Resolved]
  - Dyskinesia [Recovered/Resolved]

NARRATIVE: CASE EVENT DATE: 20190611
